FAERS Safety Report 10072205 (Version 1)
Quarter: 2014Q2

REPORT INFORMATION
  Report Type: Spontaneous
  Country: FR (occurrence: FR)
  Receive Date: 20140411
  Receipt Date: 20140411
  Transmission Date: 20141212
  Serious: Yes (Hospitalization)
  Sender: FDA-Public Use
  Company Number: FR-ASTRAZENECA-2014SE23758

PATIENT
  Age: 23291 Day
  Sex: Female

DRUGS (3)
  1. ARIMIDEX [Suspect]
     Indication: BREAST CANCER
     Route: 048
     Dates: start: 201305, end: 20140214
  2. CO-APROVEL [Concomitant]
  3. LEVOTHYROX [Concomitant]

REACTIONS (1)
  - Transient ischaemic attack [Recovered/Resolved]
